FAERS Safety Report 6177194-3 (Version None)
Quarter: 2009Q2

REPORT INFORMATION
  Report Type: 
  Country: None (occurrence: None)
  Receive Date: 20090504
  Receipt Date: 20090429
  Transmission Date: 20091009
  Serious: No
  Sender: FDA-Public Use
  Company Number: US-B.I. PHARMACEUTICALS,INC./RIDGEFIELD-2009-BP-05431BP

PATIENT
  Age: 54 Year
  Sex: Female

DRUGS (2)
  1. MIRAPEX [Suspect]
     Indication: RESTLESS LEGS SYNDROME
     Dosage: .25MG
     Route: 048
     Dates: start: 20090201
  2. DURAGESIC-100 [Concomitant]
     Indication: ARTHRALGIA
     Dates: start: 20070101

REACTIONS (2)
  - HALLUCINATION, AUDITORY [None]
  - HALLUCINATION, VISUAL [None]
